FAERS Safety Report 6691878-X (Version None)
Quarter: 2010Q2

REPORT INFORMATION
  Report Type: 
  Country: None (occurrence: None)
  Receive Date: 20100422
  Receipt Date: 20090819
  Transmission Date: 20101027
  Serious: No
  Sender: FDA-Public Use
  Company Number: US-ASTRAZENECA-2009SE09162

PATIENT
  Sex: Female

DRUGS (3)
  1. METOPROLOL SUCCINATE [Suspect]
     Indication: MIGRAINE
     Route: 048
     Dates: end: 20090101
  2. METOPROLOL TARTRATE [Suspect]
     Indication: MIGRAINE
     Route: 048
     Dates: start: 20090101
  3. HYDROCHLOROTHIAZIDE [Concomitant]

REACTIONS (2)
  - BLOOD PRESSURE INCREASED [None]
  - PRE-EXISTING CONDITION IMPROVED [None]
